FAERS Safety Report 23426449 (Version 9)
Quarter: 2025Q1

REPORT INFORMATION
  Report Type: Spontaneous
  Country: US (occurrence: US)
  Receive Date: 20240122
  Receipt Date: 20250327
  Transmission Date: 20250408
  Serious: No
  Sender: TAKEDA
  Company Number: US-TAKEDA-2024TUS005615

PATIENT
  Age: 49 Year
  Sex: Female

DRUGS (2)
  1. ENTYVIO [Suspect]
     Active Substance: VEDOLIZUMAB
     Indication: Crohn^s disease
  2. CORTISONE [Concomitant]
     Active Substance: CORTISONE
     Indication: Musculoskeletal discomfort

REACTIONS (18)
  - Musculoskeletal discomfort [Not Recovered/Not Resolved]
  - Diarrhoea [Not Recovered/Not Resolved]
  - Stress [Not Recovered/Not Resolved]
  - Brain fog [Unknown]
  - Sleep deficit [Not Recovered/Not Resolved]
  - Illness [Not Recovered/Not Resolved]
  - Fistula [Not Recovered/Not Resolved]
  - Dermatitis contact [Not Recovered/Not Resolved]
  - Contusion [Not Recovered/Not Resolved]
  - Abdominal pain [Not Recovered/Not Resolved]
  - Constipation [Not Recovered/Not Resolved]
  - Abdominal distension [Unknown]
  - Muscle spasms [Not Recovered/Not Resolved]
  - Rash [Not Recovered/Not Resolved]
  - Bronchitis [Unknown]
  - Fatigue [Unknown]
  - Aphthous ulcer [Recovering/Resolving]
  - Gastrointestinal infection [Recovering/Resolving]

NARRATIVE: CASE EVENT DATE: 20241121
